FAERS Safety Report 10186791 (Version 2)
Quarter: 2014Q2

REPORT INFORMATION
  Report Type: Report from Study
  Country: FR (occurrence: FR)
  Receive Date: 20140521
  Receipt Date: 20140521
  Transmission Date: 20141212
  Serious: Yes (Other)
  Sender: FDA-Public Use
  Company Number: FR-US-EMD SERONO, INC.-7276817

PATIENT
  Age: 33 Year
  Sex: Female
  Weight: 55 kg

DRUGS (2)
  1. REBIF [Suspect]
     Indication: PRODUCT USED FOR UNKNOWN INDICATION
     Dates: start: 20140127
  2. PARACETAMOL [Concomitant]
     Indication: PROPHYLAXIS
     Route: 048

REACTIONS (6)
  - Loss of consciousness [Recovered/Resolved]
  - Dysgeusia [Recovering/Resolving]
  - Decreased appetite [Recovered/Resolved]
  - Bronchitis [Unknown]
  - Fatigue [Unknown]
  - Injection site urticaria [Not Recovered/Not Resolved]
